FAERS Safety Report 5441574-1 (Version None)
Quarter: 2007Q3

REPORT INFORMATION
  Report Type: 
  Country: None (occurrence: None)
  Receive Date: 20070829
  Receipt Date: 20070817
  Transmission Date: 20080115
  Serious: Yes (Life-Threatening, Other)
  Sender: FDA-Public Use
  Company Number: GXKR2007GB07088

PATIENT
  Age: 67 Year
  Sex: Male
  Weight: 102 kg

DRUGS (15)
  1. WARFARIN SODIUM [Suspect]
     Indication: ATRIAL FIBRILLATION
     Dosage: ORAL
     Route: 048
     Dates: start: 20061215
  2. ADVAIR DISKUS 100/50 [Concomitant]
  3. ALLOPURINOL [Concomitant]
  4. ATORVASTATIN CALCIUM [Concomitant]
  5. CALCIUM CARBONATE (CALCIUM CARBONATE) [Concomitant]
  6. CARBOCISTEINE (CARBOCISTEINE) [Concomitant]
  7. COLECALCIFEROL (COLECALCIFEROL) [Concomitant]
  8. FLUTICASONE PROPIONATE [Concomitant]
  9. LEVOTHYROXINE SODIUM [Concomitant]
  10. SALBUTAMOL (SALBUTAMOL) [Concomitant]
  11. SALMETEROL (SALMETEROL) [Concomitant]
  12. SERETIDE (FLUTICASONE PROPIONATE, SALMETEROL XINAFOATE) [Concomitant]
  13. SPIRIVA [Concomitant]
  14. UREA (UREA) [Concomitant]
  15. VERAPAMIL HCL [Concomitant]

REACTIONS (2)
  - FOOD INTERACTION [None]
  - INTERNATIONAL NORMALISED RATIO INCREASED [None]
